FAERS Safety Report 6583275-2 (Version None)
Quarter: 2010Q1

REPORT INFORMATION
  Report Type: 
  Country: None (occurrence: None)
  Receive Date: 20100216
  Receipt Date: 20100209
  Transmission Date: 20100710
  Serious: Yes (Hospitalization)
  Sender: FDA-Public Use
  Company Number: B0626838A

PATIENT
  Sex: Male

DRUGS (7)
  1. VALTREX [Suspect]
     Indication: HERPES ZOSTER
     Dosage: 1000MG THREE TIMES PER DAY
     Route: 048
     Dates: start: 20100104, end: 20100108
  2. ZOVIRAX [Suspect]
     Indication: HERPES ZOSTER
     Dosage: 500MG PER DAY
     Route: 042
     Dates: start: 20100104, end: 20100108
  3. ZYLORIC [Concomitant]
     Dosage: 200MG PER DAY
     Route: 048
     Dates: end: 20100108
  4. HARNAL [Concomitant]
     Indication: DRUG USE FOR UNKNOWN INDICATION
     Dosage: .2MG PER DAY
     Route: 048
     Dates: end: 20100108
  5. URALYT [Concomitant]
     Dosage: 2U PER DAY
     Route: 048
     Dates: end: 20100108
  6. ACINON [Concomitant]
     Dosage: 150MG PER DAY
     Route: 048
  7. TROXSIN [Concomitant]
     Dosage: 300MG PER DAY
     Route: 048
     Dates: end: 20100108

REACTIONS (10)
  - DECREASED APPETITE [None]
  - DIARRHOEA [None]
  - DRUG LEVEL INCREASED [None]
  - FEELING ABNORMAL [None]
  - NAUSEA [None]
  - RASH GENERALISED [None]
  - RENAL FAILURE ACUTE [None]
  - URINARY RETENTION [None]
  - URINE OUTPUT DECREASED [None]
  - VOMITING [None]
